FAERS Safety Report 14353259 (Version 1)
Quarter: 2018Q1

REPORT INFORMATION
  Report Type: Spontaneous
  Country: PL (occurrence: PL)
  Receive Date: 20180105
  Receipt Date: 20180105
  Transmission Date: 20180509
  Serious: Yes (Other)
  Sender: FDA-Public Use
  Company Number: PL-CIPLA LTD.-2017PL29599

PATIENT

DRUGS (2)
  1. QUETIAPINE. [Suspect]
     Active Substance: QUETIAPINE
     Indication: DELUSIONAL DISORDER, UNSPECIFIED TYPE
     Dosage: UNK
     Route: 065
  2. RISPERIDONE. [Suspect]
     Active Substance: RISPERIDONE
     Indication: SCHIZOTYPAL PERSONALITY DISORDER
     Dosage: UNK
     Route: 065

REACTIONS (5)
  - Hypertriglyceridaemia [Recovering/Resolving]
  - Xanthoma [Recovered/Resolved]
  - Hepatic steatosis [Unknown]
  - Hyperglycaemia [Recovering/Resolving]
  - Hypercholesterolaemia [Recovering/Resolving]
